FAERS Safety Report 17607434 (Version 32)
Quarter: 2022Q3

REPORT INFORMATION
  Report Type: Spontaneous
  Country: DE (occurrence: DE)
  Receive Date: 20200331
  Receipt Date: 20220817
  Transmission Date: 20221026
  Serious: Yes (Life-Threatening, Hospitalization, Other)
  Sender: FDA-Public Use
  Company Number: DE-BRISTOL-MYERS SQUIBB COMPANY-BMS-2020-025402

PATIENT
  Age: 68 Year
  Sex: Male
  Weight: 77 kg

DRUGS (27)
  1. ELIQUIS [Interacting]
     Active Substance: APIXABAN
     Indication: Cerebrovascular accident prophylaxis
     Dosage: 5 MILLIGRAM, BID
     Route: 065
     Dates: start: 201808
  2. ELIQUIS [Interacting]
     Active Substance: APIXABAN
     Indication: Atrial fibrillation
  3. AMLODIPINE BESYLATE [Interacting]
     Active Substance: AMLODIPINE BESYLATE
     Indication: Hypertension
     Dosage: 5 MG, TWICE DAILY, 1-0-1
     Route: 065
     Dates: start: 201808
  4. RAMIPRIL [Interacting]
     Active Substance: RAMIPRIL
     Indication: Hypertension
     Dosage: 5 MG, Q12H (10 MILLIGRAM, QD )
     Route: 065
     Dates: start: 201808
  5. SIMVASTATIN [Interacting]
     Active Substance: SIMVASTATIN
     Indication: Blood cholesterol abnormal
     Dosage: 40 MG, 1X/DAY (AT NIGHT)
     Route: 048
     Dates: start: 201808
  6. SIMVASTATIN [Interacting]
     Active Substance: SIMVASTATIN
     Indication: Hypertension
     Dosage: 10 MILLIGRAM, QD
     Route: 065
     Dates: start: 201808
  7. SIMVASTATIN [Interacting]
     Active Substance: SIMVASTATIN
     Indication: Diabetes mellitus
     Dosage: 15 INTERNATIONAL UNIT, DAILY
     Route: 065
     Dates: start: 201808
  8. SIMVASTATIN [Interacting]
     Active Substance: SIMVASTATIN
     Indication: Gout
     Dosage: 50 MG, DAILY
     Route: 065
     Dates: start: 201808
  9. SIMVASTATIN [Interacting]
     Active Substance: SIMVASTATIN
     Indication: Coronary artery disease
     Dosage: 100 MG, DAILY
     Route: 065
     Dates: start: 201808
  10. SIMVASTATIN [Interacting]
     Active Substance: SIMVASTATIN
     Dosage: 50 MILLIGRAM, QD
     Route: 048
     Dates: start: 20110506
  11. SIMVASTATIN [Interacting]
     Active Substance: SIMVASTATIN
     Dosage: 40 MILLIGRAM, QD
     Route: 048
     Dates: start: 20110506
  12. INSULIN GLARGINE [Interacting]
     Active Substance: INSULIN GLARGINE
     Indication: Diabetes mellitus
     Dosage: 15 INTERNATIONAL UNIT, QD
     Route: 065
     Dates: start: 201808
  13. INSULIN GLARGINE [Interacting]
     Active Substance: INSULIN GLARGINE
     Indication: Diabetes mellitus
     Dosage: 15 INTERNATIONAL UNIT, DAILY, IN THE EVENING
     Route: 065
     Dates: start: 201808
  14. BENFOTIAMINE [Interacting]
     Active Substance: BENFOTIAMINE
     Indication: Cardiovascular disorder
     Dosage: 300 MG, 1X/DAY
     Route: 065
     Dates: start: 201808
  15. BENFOTIAMINE [Interacting]
     Active Substance: BENFOTIAMINE
     Indication: Cerebrovascular accident prophylaxis
  16. TORSEMIDE [Interacting]
     Active Substance: TORSEMIDE
     Indication: Renal disorder
     Dosage: 10 MG, DAILY IN THE MORNING 1-0-0
     Route: 065
     Dates: start: 201808
  17. IVABRADINE [Interacting]
     Active Substance: IVABRADINE
     Indication: Cardiac disorder
     Dosage: 7.5 MILLIGRAM, DAILY
     Route: 065
     Dates: start: 201808
  18. CARVEDILOL [Interacting]
     Active Substance: CARVEDILOL
     Indication: Cardiac disorder
     Dosage: 25 MG, Q12H, 1-0-1
     Route: 065
     Dates: start: 201808
  19. ALLOPURINOL [Interacting]
     Active Substance: ALLOPURINOL
     Indication: Gout
     Dosage: 100 MG, DAILY
     Route: 065
     Dates: start: 201808
  20. JANUMET [Interacting]
     Active Substance: METFORMIN HYDROCHLORIDE\SITAGLIPTIN PHOSPHATE
     Indication: Diabetes mellitus
     Dosage: 1 DF, DAILY (50/1000MMG)
     Route: 065
     Dates: start: 201808
  21. SPIRONOLACTONE [Interacting]
     Active Substance: SPIRONOLACTONE
     Indication: Coronary artery disease
     Dosage: 50 MG, QD
     Route: 048
     Dates: start: 20110506
  22. SPIRONOLACTONE [Interacting]
     Active Substance: SPIRONOLACTONE
     Indication: Cardiac disorder
     Dosage: 1-0-0, 50 MG, ONCE DAILY IN THE MORNING
     Route: 048
     Dates: start: 201808
  23. AVASTIN [Interacting]
     Active Substance: BEVACIZUMAB
     Indication: Diabetic retinal oedema
     Dosage: INJECTED IN THE RIGHT EYE 13:30
     Route: 031
     Dates: start: 20200115
  24. ATORVASTATIN CALCIUM [Interacting]
     Active Substance: ATORVASTATIN CALCIUM
     Indication: Diabetic retinal oedema
     Dosage: 1 DOSAGE FORM (INJECT IN THE RIGHT EYE AT 13.30)
     Route: 031
     Dates: start: 20200115
  25. SIMVASTATIN\VALSARTAN [Suspect]
     Active Substance: SIMVASTATIN\VALSARTAN
     Indication: Coronary artery disease
     Dosage: 40 MG, QD(40 MILLIGRAM, DAILY;0-0-1 )
     Dates: start: 20110506
  26. LEVETIRACETAM [Concomitant]
     Active Substance: LEVETIRACETAM
     Dosage: 1 DF, 2X/DAY(1-0-1)
     Route: 065
  27. LEVETIRACETAM [Concomitant]
     Active Substance: LEVETIRACETAM
     Dosage: 1 DOSAGE FORM, BID

REACTIONS (9)
  - Drug interaction [Recovered/Resolved]
  - Eye movement disorder [Recovered/Resolved]
  - Movement disorder [Recovered/Resolved]
  - Seizure [Recovered/Resolved]
  - Oculogyric crisis [Recovered/Resolved]
  - Status epilepticus [Recovering/Resolving]
  - Muscle spasms [Recovered/Resolved]
  - Off label use [Recovered/Resolved]
  - Product use issue [Recovered/Resolved]

NARRATIVE: CASE EVENT DATE: 20180801
